FAERS Safety Report 6611934-1 (Version None)
Quarter: 2010Q1

REPORT INFORMATION
  Report Type: 
  Country: None (occurrence: None)
  Receive Date: 20100303
  Receipt Date: 20100219
  Transmission Date: 20100710
  Serious: Yes (Other)
  Sender: FDA-Public Use
  Company Number: DE-GENENTECH-298690

PATIENT
  Sex: Female

DRUGS (1)
  1. XOLAIR [Suspect]
     Indication: DRUG USE FOR UNKNOWN INDICATION
     Dosage: 150 MG, SINGLE
     Route: 058
     Dates: start: 20100204, end: 20100204

REACTIONS (3)
  - ANAPHYLACTOID REACTION [None]
  - FLUSHING [None]
  - PARAESTHESIA [None]
